FAERS Safety Report 6956939-6 (Version None)
Quarter: 2010Q3

REPORT INFORMATION
  Report Type: 
  Country: None (occurrence: None)
  Receive Date: 20100826
  Receipt Date: 20100602
  Transmission Date: 20110219
  Serious: No
  Sender: FDA-Public Use
  Company Number: 1-22851292

PATIENT
  Age: 59 Year
  Sex: Female

DRUGS (13)
  1. FENTANYL-25 [Suspect]
     Indication: ANALGESIC THERAPY
     Dosage: 250 MCG, DIVIDED DOSES, INTRAVENOUS
     Route: 042
  2. ESCITALOPRAM [Suspect]
  3. INSULIN [Concomitant]
  4. TRAZODONE HCL [Concomitant]
  5. GABAPENTIN [Concomitant]
  6. LANSOPRAZOLE [Concomitant]
  7. LORAZEPAM [Concomitant]
  8. OXYCODONE [Concomitant]
  9. CETIRIZINE HCL [Concomitant]
  10. ETOMIDATE [Concomitant]
  11. VECURONIUM BROMIDE [Concomitant]
  12. MORPHINE [Concomitant]
  13. CEFAZOLIN [Concomitant]

REACTIONS (6)
  - DRUG INTERACTION [None]
  - HYPOXIA [None]
  - RESPIRATORY ACIDOSIS [None]
  - SEROTONIN SYNDROME [None]
  - SOMNOLENCE [None]
  - TACHYCARDIA [None]
